FAERS Safety Report 7537444-5 (Version None)
Quarter: 2011Q2

REPORT INFORMATION
  Report Type: 
  Country: None (occurrence: None)
  Receive Date: 20110608
  Receipt Date: 20110608
  Transmission Date: 20111010
  Serious: Yes (Life-Threatening, Hospitalization, Other)
  Sender: FDA-Public Use
  Company Number: None

PATIENT
  Age: 36 Year
  Sex: Male
  Weight: 96.1626 kg

DRUGS (1)
  1. LAMOTRIGINE [Suspect]
     Indication: BIPOLAR DISORDER
     Dosage: 200MG ONCE AT NIGHT PO
     Route: 048
     Dates: start: 20080101, end: 20110607

REACTIONS (4)
  - DEPRESSED MOOD [None]
  - PRODUCT SUBSTITUTION ISSUE [None]
  - LOSS OF EMPLOYMENT [None]
  - MOOD SWINGS [None]
